FAERS Safety Report 10780335 (Version 1)
Quarter: 2015Q1

REPORT INFORMATION
  Report Type: Other
  Country: US (occurrence: US)
  Receive Date: 20150210
  Receipt Date: 20150210
  Transmission Date: 20150721
  Serious: Yes (Death)
  Sender: FDA-Public Use
  Company Number: US-FRI-1000074381

PATIENT
  Age: 52 Year
  Sex: Male

DRUGS (9)
  1. GABAPENTIN. [Suspect]
     Active Substance: GABAPENTIN
  2. DILTIAZEM (EXTENDED RELEASE) [Suspect]
     Active Substance: DILTIAZEM
  3. MIRTAZAPINE. [Suspect]
     Active Substance: MIRTAZAPINE
  4. ETHANOL [Suspect]
     Active Substance: ALCOHOL
  5. HYDROXYZINE [Suspect]
     Active Substance: HYDROXYZINE\HYDROXYZINE HYDROCHLORIDE
  6. OMEPRAZOLE. [Suspect]
     Active Substance: OMEPRAZOLE
  7. SALICYLATE [Suspect]
     Active Substance: SALICYLIC ACID
  8. CITALOPRAM [Suspect]
     Active Substance: CITALOPRAM HYDROBROMIDE
  9. METOPROLOL [Suspect]
     Active Substance: METOPROLOL

REACTIONS (1)
  - Completed suicide [Fatal]
